FAERS Safety Report 6868435-5 (Version None)
Quarter: 2010Q3

REPORT INFORMATION
  Report Type: 
  Country: None (occurrence: None)
  Receive Date: 20100722
  Receipt Date: 20080523
  Transmission Date: 20110219
  Serious: No
  Sender: FDA-Public Use
  Company Number: US-PFIZER INC-2008045828

PATIENT
  Sex: Male
  Weight: 92.99 kg

DRUGS (5)
  1. CHANTIX [Suspect]
     Indication: SMOKING CESSATION THERAPY
     Dates: start: 20080514
  2. EFFEXOR [Concomitant]
  3. DIOVAN HCT [Concomitant]
  4. LOTREL [Concomitant]
  5. VYTORIN [Concomitant]

REACTIONS (6)
  - ABNORMAL DREAMS [None]
  - ASTHENIA [None]
  - HYPERSOMNIA [None]
  - LETHARGY [None]
  - MENTAL IMPAIRMENT [None]
  - WRONG TECHNIQUE IN DRUG USAGE PROCESS [None]
